FAERS Safety Report 6601446-3 (Version None)
Quarter: 2010Q1

REPORT INFORMATION
  Report Type: 
  Country: None (occurrence: None)
  Receive Date: 20100225
  Receipt Date: 20100216
  Transmission Date: 20100710
  Serious: Yes (Congenital Anomaly)
  Sender: FDA-Public Use
  Company Number: FR-PFIZER INC-2010019997

PATIENT

DRUGS (1)
  1. ZOLOFT [Suspect]
     Route: 064

REACTIONS (2)
  - CLEFT PALATE [None]
  - DRUG EXPOSURE BEFORE PREGNANCY [None]
